FAERS Safety Report 4927018-4 (Version None)
Quarter: 2006Q1

REPORT INFORMATION
  Report Type: 
  Country: None (occurrence: None)
  Receive Date: 20060228
  Receipt Date: 20051005
  Transmission Date: 20060701
  Serious: No
  Sender: FDA-Public Use
  Company Number: US-GLAXOSMITHKLINE-A0577180A

PATIENT
  Age: 65 Year
  Sex: Female

DRUGS (4)
  1. LAMICTAL [Suspect]
     Dosage: 25MG FOUR TIMES PER DAY
     Route: 048
     Dates: start: 20041101
  2. AVAPRO [Concomitant]
  3. METFORMIN [Concomitant]
  4. PRAVACHOL [Concomitant]

REACTIONS (1)
  - PALPITATIONS [None]
